FAERS Safety Report 6444424-X (Version None)
Quarter: 2009Q4

REPORT INFORMATION
  Report Type: 
  Country: None (occurrence: None)
  Receive Date: 20091110
  Receipt Date: 20090724
  Transmission Date: 20100525
  Serious: Yes (Other)
  Sender: FDA-Public Use
  Company Number: 1000007730

PATIENT

DRUGS (2)
  1. SAVELLA [Suspect]
  2. CYMBALTA [Suspect]

REACTIONS (1)
  - CONVULSION [None]
